FAERS Safety Report 13469780 (Version 2)
Quarter: 2018Q4

REPORT INFORMATION
  Report Type: Spontaneous
  Country: DE (occurrence: DE)
  Receive Date: 20170422
  Receipt Date: 20181219
  Transmission Date: 20190204
  Serious: Yes (Hospitalization, Other)
  Sender: FDA-Public Use
  Company Number: DE-ACCORD-050656

PATIENT
  Age: 55 Year
  Sex: Female

DRUGS (2)
  1. TACROLIMUS. [Suspect]
     Active Substance: TACROLIMUS
     Indication: CHRONIC HEPATITIS B
     Dates: start: 201412
  2. PREDNISOLONE. [Suspect]
     Active Substance: PREDNISOLONE
     Indication: CHRONIC HEPATITIS C
     Dosage: DAILY DOSE: 5 MG MILLIGRAM(S) EVERY DAY
     Dates: start: 201412

REACTIONS (3)
  - Bursitis [Recovered/Resolved]
  - Off label use [Unknown]
  - Fungal infection [Recovered/Resolved]
